FAERS Safety Report 16624755 (Version 1)
Quarter: 2019Q3

REPORT INFORMATION
  Report Type: Spontaneous
  Country: CA (occurrence: CA)
  Receive Date: 20190724
  Receipt Date: 20190724
  Transmission Date: 20191004
  Serious: Yes (Hospitalization, Disabling, Other)
  Sender: FDA-Public Use
  Company Number: CA-PFIZER INC-2019310442

PATIENT
  Age: 36 Year
  Sex: Female
  Weight: 70 kg

DRUGS (2)
  1. DEPO-PROVERA [Suspect]
     Active Substance: MEDROXYPROGESTERONE ACETATE
     Indication: CONTRACEPTION
     Dosage: UNK
  2. DEPO-PROVERA [Suspect]
     Active Substance: MEDROXYPROGESTERONE ACETATE
     Dosage: UNK UNK, EVERY 3 MONTHS

REACTIONS (5)
  - Epilepsy [Recovering/Resolving]
  - Generalised tonic-clonic seizure [Recovering/Resolving]
  - Headache [Recovering/Resolving]
  - Impaired work ability [Recovering/Resolving]
  - Respiratory distress [Recovering/Resolving]
